FAERS Safety Report 7062038-8 (Version None)
Quarter: 2010Q4

REPORT INFORMATION
  Report Type: 
  Country: None (occurrence: None)
  Receive Date: 20101026
  Receipt Date: 20101020
  Transmission Date: 20110411
  Serious: Yes (Hospitalization)
  Sender: FDA-Public Use
  Company Number: A0800213A

PATIENT
  Age: 58 Year
  Sex: Female
  Weight: 92.3 kg

DRUGS (14)
  1. AVANDIA [Suspect]
     Indication: DIABETES MELLITUS
     Dosage: 4MG PER DAY
     Route: 048
     Dates: start: 20060301, end: 20070401
  2. AVANDAMET [Suspect]
     Indication: DIABETES MELLITUS
     Route: 048
  3. ADVAIR DISKUS 100/50 [Concomitant]
  4. LIPITOR [Concomitant]
  5. NEURONTIN [Concomitant]
  6. AMARYL [Concomitant]
  7. LEVOTHROID [Concomitant]
  8. TOPROL-XL [Concomitant]
  9. BENICAR [Concomitant]
  10. GLUCOTROL [Concomitant]
     Dates: end: 20040701
  11. AMARYL [Concomitant]
     Dates: start: 20040701
  12. SYNTHROID [Concomitant]
  13. CELEBREX [Concomitant]
  14. METFORMIN [Concomitant]

REACTIONS (17)
  - ANGINA UNSTABLE [None]
  - BLOOD PRESSURE DECREASED [None]
  - CARDIAC FAILURE CONGESTIVE [None]
  - CORONARY ARTERY DISEASE [None]
  - COSTOCHONDRITIS [None]
  - DIZZINESS [None]
  - EMOTIONAL DISTRESS [None]
  - FLUID RETENTION [None]
  - HYPERTENSIVE HEART DISEASE [None]
  - INCREASED TENDENCY TO BRUISE [None]
  - LIVER FUNCTION TEST ABNORMAL [None]
  - MITRAL VALVE INCOMPETENCE [None]
  - MYOCARDIAL ISCHAEMIA [None]
  - TRICUSPID VALVE INCOMPETENCE [None]
  - VENTRICULAR EXTRASYSTOLES [None]
  - VISUAL IMPAIRMENT [None]
  - WEIGHT INCREASED [None]
